FAERS Safety Report 8965312 (Version 1)
Quarter: 2012Q4

REPORT INFORMATION
  Report Type: 
  Country: CA (occurrence: CA)
  Receive Date: 20121213
  Receipt Date: 20121213
  Transmission Date: 20130627
  Serious: Yes (Death)
  Sender: FDA-Public Use
  Company Number: CA-SANOFI-AVENTIS-2012SA048217

PATIENT
  Age: 64 Year
  Sex: Female
  Weight: 55 kg

DRUGS (5)
  1. TAXOTERE [Suspect]
     Indication: DRUG USE FOR UNKNOWN INDICATION
     Dosage: dosage form: soultion intravenous
strength: 80mg/ml
     Route: 042
  2. HYDROCHLOROTHIAZIDE [Concomitant]
     Route: 048
  3. AMLODIPINE BESILATE [Concomitant]
     Route: 048
  4. PAMIDRONATE DISODIUM [Concomitant]
     Route: 042
  5. RAMIPRIL [Concomitant]
     Route: 048

REACTIONS (2)
  - Pneumonitis [Fatal]
  - Fatigue [Fatal]
